FAERS Safety Report 9109753 (Version 1)
Quarter: 2013Q1

REPORT INFORMATION
  Report Type: Spontaneous
  Country: US (occurrence: US)
  Receive Date: 20130222
  Receipt Date: 20130222
  Transmission Date: 20140127
  Serious: No
  Sender: FDA-Public Use
  Company Number: US-PFIZER INC-2013063906

PATIENT
  Age: 65 Year
  Sex: Male

DRUGS (5)
  1. SUTENT [Suspect]
     Indication: CONNECTIVE TISSUE NEOPLASM
     Dosage: 50 MG, UNK
     Dates: start: 20130131
  2. ATENOLOL [Concomitant]
     Dosage: UNK
  3. HYDROCODONE/ACETAMINOPHEN [Concomitant]
     Dosage: UNK
  4. LEVOTHYROXINE SODIUM [Concomitant]
     Dosage: UNK
  5. VITAMIN D [Concomitant]
     Dosage: UNK

REACTIONS (5)
  - Erythema [Unknown]
  - Oedema peripheral [Unknown]
  - Asthenia [Unknown]
  - Oral disorder [Unknown]
  - Off label use [Unknown]
